FAERS Safety Report 22139271 (Version 5)
Quarter: 2024Q2

REPORT INFORMATION
  Report Type: Spontaneous
  Country: US (occurrence: US)
  Receive Date: 20230327
  Receipt Date: 20240506
  Transmission Date: 20240716
  Serious: Yes (Other)
  Sender: FDA-Public Use
  Company Number: US-SA-SAC20230323000860

PATIENT
  Age: 49 Year
  Sex: Female

DRUGS (1)
  1. DUPIXENT [Suspect]
     Active Substance: DUPILUMAB
     Indication: Dermatitis atopic
     Dosage: 300 MG, QOW
     Route: 058

REACTIONS (8)
  - Thrombosis [Unknown]
  - Skin infection [Recovered/Resolved]
  - Condition aggravated [Unknown]
  - Injection site rash [Unknown]
  - Injection site discolouration [Not Recovered/Not Resolved]
  - Injection site dryness [Unknown]
  - Injection site exfoliation [Not Recovered/Not Resolved]
  - Injection site bruising [Unknown]

NARRATIVE: CASE EVENT DATE: 20230103
